FAERS Safety Report 5978650-0 (Version None)
Quarter: 2008Q4

REPORT INFORMATION
  Report Type: 
  Country: None (occurrence: None)
  Receive Date: 20081202
  Receipt Date: 20081124
  Transmission Date: 20090506
  Serious: Yes (Hospitalization)
  Sender: FDA-Public Use
  Company Number: 232262K08USA

PATIENT
  Age: 22 Year
  Sex: Male

DRUGS (2)
  1. REBIF [Suspect]
     Indication: MULTIPLE SCLEROSIS
     Dosage: 44 MCG, 3 IN 1 WEEKS, SUBCUTANEOUS
     Route: 058
     Dates: start: 20071026
  2. ALEVE (CAPLET) [Concomitant]

REACTIONS (5)
  - HYPOPHAGIA [None]
  - LOSS OF CONSCIOUSNESS [None]
  - PYREXIA [None]
  - TONSILLAR HYPERTROPHY [None]
  - TONSILLAR INFLAMMATION [None]
